FAERS Safety Report 5624412-3 (Version None)
Quarter: 2008Q1

REPORT INFORMATION
  Report Type: 
  Country: None (occurrence: None)
  Receive Date: 20080213
  Receipt Date: 20080211
  Transmission Date: 20080703
  Serious: Yes (Hospitalization)
  Sender: FDA-Public Use
  Company Number: IT-BRISTOL-MYERS SQUIBB COMPANY-14013247

PATIENT
  Age: 42 Year
  Sex: Male

DRUGS (2)
  1. PRAVASELECT [Suspect]
     Indication: DYSLIPIDAEMIA
     Dosage: INTERRUPTED ON 15-SEP-2007.
     Route: 048
     Dates: start: 20070720
  2. ENAPREN [Concomitant]
     Route: 048

REACTIONS (1)
  - RENAL FAILURE ACUTE [None]
